FAERS Safety Report 7390136-8 (Version None)
Quarter: 2011Q2

REPORT INFORMATION
  Report Type: 
  Country: None (occurrence: None)
  Receive Date: 20110401
  Receipt Date: 20110321
  Transmission Date: 20111010
  Serious: Yes (Other)
  Sender: FDA-Public Use
  Company Number: PHHY2011US15686

PATIENT
  Sex: Female
  Weight: 82.54 kg

DRUGS (16)
  1. ASCORBIC ACID [Concomitant]
     Dosage: UNK
  2. VITAMIN B-12 [Concomitant]
  3. BIOTIN [Concomitant]
     Dosage: 2 DF, QD
  4. CEPHADIN [Concomitant]
     Dosage: UNK
  5. VITAMIN B6 [Concomitant]
     Dosage: 2 DF, QD
  6. MULTIVITAMIN ^LAPPE^ [Concomitant]
  7. CYANOCOBALAMIN [Concomitant]
  8. VITAMIN D [Concomitant]
     Dosage: 1200 MG, QD
     Route: 048
  9. GILENYA [Suspect]
     Indication: MULTIPLE SCLEROSIS
     Dosage: 0.5 MG, QD
     Route: 048
     Dates: start: 20110127
  10. FLEXERIL [Concomitant]
     Dosage: 10 MG, UNK
  11. ZANAFLEX [Concomitant]
  12. EVENING PRIMROSE OIL               /01332402/ [Concomitant]
     Dosage: UNK
  13. SYNTHROID [Concomitant]
  14. ASPIRIN [Concomitant]
     Dosage: 81 MG, QD
  15. LIDODERM [Concomitant]
     Dosage: UNK
  16. LORAZEPAM [Concomitant]

REACTIONS (6)
  - WEIGHT INCREASED [None]
  - DYSPNOEA [None]
  - SLEEP DISORDER [None]
  - ALOPECIA [None]
  - ABNORMAL DREAMS [None]
  - OEDEMA PERIPHERAL [None]
